FAERS Safety Report 5877001-X (Version None)
Quarter: 2008Q3

REPORT INFORMATION
  Report Type: 
  Country: None (occurrence: None)
  Receive Date: 20080910
  Receipt Date: 20080829
  Transmission Date: 20090109
  Serious: Yes (Other)
  Sender: FDA-Public Use
  Company Number: US-SANOFI-SYNTHELABO-A03200803455

PATIENT
  Sex: Male

DRUGS (2)
  1. AVODART [Concomitant]
     Indication: DRUG USE FOR UNKNOWN INDICATION
     Dosage: UNK
     Route: 048
  2. UROXATRAL [Suspect]
     Indication: PROSTATIC DISORDER
     Dosage: UNK
     Route: 048
     Dates: start: 20080801

REACTIONS (4)
  - CYANOSIS [None]
  - DYSPNOEA [None]
  - FOREIGN BODY ASPIRATION [None]
  - PHARMACEUTICAL PRODUCT COMPLAINT [None]
